FAERS Safety Report 23410190 (Version 1)
Quarter: 2024Q1

REPORT INFORMATION
  Report Type: Spontaneous
  Country: CN (occurrence: CN)
  Receive Date: 20240117
  Receipt Date: 20240117
  Transmission Date: 20240410
  Serious: Yes (Hospitalization)
  Sender: FDA-Public Use
  Company Number: CN-JNJFOC-20240123115

PATIENT
  Age: 4 Day
  Sex: Female
  Weight: 0.82 kg

DRUGS (3)
  1. MOTRIN INFANTS [Suspect]
     Active Substance: IBUPROFEN
     Indication: Patent ductus arteriosus
     Route: 048
     Dates: start: 20231231, end: 20240102
  2. CEFOTAXIME SODIUM [Suspect]
     Active Substance: CEFOTAXIME SODIUM
     Indication: Neonatal pneumonia
     Route: 041
     Dates: start: 20231227, end: 20240101
  3. GLYCERIN [Suspect]
     Active Substance: GLYCERIN
     Indication: Faecal disimpaction
     Dosage: ONCE
     Route: 065
     Dates: start: 20240101

REACTIONS (2)
  - Off label use [Unknown]
  - Upper gastrointestinal haemorrhage [Recovering/Resolving]

NARRATIVE: CASE EVENT DATE: 20231231
